FAERS Safety Report 5200847-8 (Version None)
Quarter: 2007Q1

REPORT INFORMATION
  Report Type: 
  Country: None (occurrence: None)
  Receive Date: 20070108
  Receipt Date: 20061226
  Transmission Date: 20070707
  Serious: Yes (Other)
  Sender: FDA-Public Use
  Company Number: PHBS2006BR19890

PATIENT
  Age: 6 Year
  Sex: Male
  Weight: 33 kg

DRUGS (3)
  1. TRILEPTAL [Suspect]
     Indication: CONVULSION
     Dosage: 5.5 ML, Q12H
     Route: 048
  2. KETOTIFEN [Concomitant]
     Indication: HYPERSENSITIVITY
     Dosage: 10 ML/D
     Route: 048
     Dates: start: 20060101
  3. SINGULAIR [Concomitant]
     Indication: HYPERSENSITIVITY
     Dosage: 10 MG/D
     Route: 048
     Dates: start: 20060101

REACTIONS (3)
  - DIARRHOEA [None]
  - GASTROINTESTINAL INFECTION [None]
  - PYREXIA [None]
